FAERS Safety Report 8617963-0 (Version None)
Quarter: 2012Q3

REPORT INFORMATION
  Report Type: 
  Country: None (occurrence: None)
  Receive Date: 20120824
  Receipt Date: 20120815
  Transmission Date: 20120928
  Serious: Yes (Hospitalization, Other)
  Sender: FDA-Public Use
  Company Number: US-009507513-1203USA01081

PATIENT

DRUGS (6)
  1. FOSAMAX [Suspect]
     Indication: OSTEOPOROSIS
     Dosage: 70 MG, UNK
     Route: 048
     Dates: start: 20000101, end: 20070601
  2. VITAMINS (UNSPECIFIED) [Concomitant]
     Dosage: UNK
     Dates: start: 19970101
  3. ACTONEL [Suspect]
     Indication: OSTEOPOROSIS
     Dosage: 35 MG, UNK
     Dates: start: 20071231, end: 20090101
  4. VITAMIN D [Concomitant]
     Dosage: 800 IU, UNK
     Dates: start: 19970101
  5. CALCIUM (UNSPECIFIED) [Concomitant]
     Dosage: 1500 MG, UNK
     Dates: start: 19970101
  6. RECLAST [Suspect]
     Indication: OSTEOPOROSIS
     Dosage: UNK
     Dates: start: 20090101, end: 20110101

REACTIONS (8)
  - SPINAL COMPRESSION FRACTURE [None]
  - RIB FRACTURE [None]
  - FEMUR FRACTURE [None]
  - BONE DISORDER [None]
  - OPEN REDUCTION OF FRACTURE [None]
  - FALL [None]
  - FRACTURE [None]
  - SEASONAL ALLERGY [None]
